FAERS Safety Report 4853565-X (Version None)
Quarter: 2005Q4

REPORT INFORMATION
  Report Type: 
  Country: None (occurrence: None)
  Receive Date: 20051214
  Receipt Date: 20050721
  Transmission Date: 20060501
  Serious: Yes (Life-Threatening, Hospitalization, Other)
  Sender: FDA-Public Use
  Company Number: PHNU2005DE02636

PATIENT
  Age: 57 Year
  Sex: Male

DRUGS (1)
  1. LAMISIL [Suspect]
     Indication: ONYCHOMYCOSIS
     Dosage: 250 MG, QD, 3 CYCLES
     Route: 048

REACTIONS (25)
  - AGRANULOCYTOSIS [None]
  - ALPHA 1 GLOBULIN INCREASED [None]
  - ALPHA 2 GLOBULIN INCREASED [None]
  - BAND NEUTROPHIL PERCENTAGE DECREASED [None]
  - C-REACTIVE PROTEIN INCREASED [None]
  - CELLULITIS [None]
  - DIFFICULTY IN WALKING [None]
  - ERYSIPELAS [None]
  - ERYTHEMA [None]
  - EXCORIATION [None]
  - FALL [None]
  - GAMMA-GLUTAMYLTRANSFERASE INCREASED [None]
  - HIGH DENSITY LIPOPROTEIN DECREASED [None]
  - HYPERALBUMINAEMIA [None]
  - HYPERGAMMAGLOBULINAEMIA [None]
  - HYPERTHERMIA [None]
  - INFLAMMATION [None]
  - LEUKOPENIA [None]
  - LOW DENSITY LIPOPROTEIN INCREASED [None]
  - NAIL DYSTROPHY [None]
  - NEUTROPHIL PERCENTAGE DECREASED [None]
  - PAIN IN EXTREMITY [None]
  - PYREXIA [None]
  - ROAD TRAFFIC ACCIDENT [None]
  - SWELLING [None]
